FAERS Safety Report 23932451 (Version 2)
Quarter: 2024Q2

REPORT INFORMATION
  Report Type: Spontaneous
  Country: JP (occurrence: JP)
  Receive Date: 20240603
  Receipt Date: 20240620
  Transmission Date: 20240716
  Serious: Yes (Hospitalization)
  Sender: FDA-Public Use
  Company Number: JP-ABBVIE-5785778

PATIENT
  Age: 68 Year
  Sex: Female
  Weight: 58 kg

DRUGS (6)
  1. RINVOQ [Suspect]
     Active Substance: UPADACITINIB
     Indication: Rheumatoid arthritis
     Dosage: FORM STRENGTH: 7.5 MG
     Route: 048
     Dates: start: 20210921, end: 20221213
  2. RINVOQ [Suspect]
     Active Substance: UPADACITINIB
     Indication: Rheumatoid arthritis
     Dosage: FORM STRENGTH: 7.5 MG
     Route: 048
     Dates: start: 20230228
  3. CELECOXIB [Concomitant]
     Active Substance: CELECOXIB
     Indication: Product used for unknown indication
     Dosage: FORM STRENGTH: 100 FREQUENCY- AT THE TIME OF PAIN
     Route: 048
  4. METHOTREXATE [Concomitant]
     Active Substance: METHOTREXATE
     Indication: Rheumatoid arthritis
     Dosage: 2 UNKNOWN
     Route: 048
     Dates: start: 20200514, end: 20221130
  5. REBAMIPIDE DK [Concomitant]
     Indication: Product used for unknown indication
     Route: 048
  6. SULFASALAZINE [Concomitant]
     Active Substance: SULFASALAZINE
     Indication: Rheumatoid arthritis
     Dosage: 1000 UNKNOWN
     Route: 048
     Dates: start: 20190301, end: 20220921

REACTIONS (1)
  - Large intestine polyp [Unknown]

NARRATIVE: CASE EVENT DATE: 20221114
